FAERS Safety Report 14617608 (Version 2)
Quarter: 2018Q2

REPORT INFORMATION
  Report Type: Spontaneous
  Country: US (occurrence: US)
  Receive Date: 20180309
  Receipt Date: 20180419
  Transmission Date: 20180711
  Serious: No
  Sender: FDA-Public Use
  Company Number: US-ASTRAZENECA-2018SE18407

PATIENT
  Age: 907 Month
  Sex: Female

DRUGS (8)
  1. SYMBICORT [Suspect]
     Active Substance: BUDESONIDE\FORMOTEROL FUMARATE DIHYDRATE
     Indication: ASTHMA
     Dosage: 160MCG/4.5 MCG 2 PUFFS, TWO TIMES A DAY
     Route: 055
     Dates: start: 20180208
  2. CALCIUM [Concomitant]
     Active Substance: CALCIUM
     Indication: BONE DISORDER
     Route: 048
  3. ALBUTEROL. [Concomitant]
     Active Substance: ALBUTEROL
     Indication: INHALATION THERAPY
     Dosage: AS REQUIRED
  4. SYMBICORT [Suspect]
     Active Substance: BUDESONIDE\FORMOTEROL FUMARATE DIHYDRATE
     Indication: BRONCHITIS
     Dosage: 160MCG/4.5 MCG 2 PUFFS, TWO TIMES A DAY
     Route: 055
     Dates: start: 20180208
  5. VITAMINS [Concomitant]
     Active Substance: VITAMINS
     Indication: VISUAL IMPAIRMENT
     Dosage: EVERY DAY
     Route: 048
  6. SYMBICORT [Suspect]
     Active Substance: BUDESONIDE\FORMOTEROL FUMARATE DIHYDRATE
     Indication: BRONCHITIS
     Dosage: 160MCG/4.5 MCG 1 PUFFS, TWO TIMES A DAY
     Route: 055
     Dates: start: 201801
  7. ZOCAR [Concomitant]
     Indication: BLOOD CHOLESTEROL ABNORMAL
     Route: 048
     Dates: start: 2008
  8. SYMBICORT [Suspect]
     Active Substance: BUDESONIDE\FORMOTEROL FUMARATE DIHYDRATE
     Indication: ASTHMA
     Dosage: 160MCG/4.5 MCG 1 PUFFS, TWO TIMES A DAY
     Route: 055
     Dates: start: 201801

REACTIONS (9)
  - Lacrimation increased [Unknown]
  - Product use issue [Unknown]
  - Macular degeneration [Unknown]
  - Cataract [Unknown]
  - Device failure [Unknown]
  - Circumstance or information capable of leading to medication error [Unknown]
  - Intentional product misuse [Unknown]
  - Off label use [Unknown]
  - Hordeolum [Unknown]

NARRATIVE: CASE EVENT DATE: 201701
